FAERS Safety Report 10050247 (Version 1)
Quarter: 2014Q1

REPORT INFORMATION
  Report Type: Spontaneous
  Country: US (occurrence: None)
  Receive Date: 20140331
  Receipt Date: 20140331
  Transmission Date: 20141002
  Serious: Yes (Disabling, Other)
  Sender: FDA-Public Use
  Company Number: None

PATIENT
  Age: 50 Year
  Sex: Female
  Weight: 57.15 kg

DRUGS (3)
  1. AMANTADINE [Suspect]
     Indication: BLOOD PROLACTIN INCREASED
     Dosage: 1 PILLS  TWICE DAILY  TAKEN BY MOUTH
     Route: 048
     Dates: start: 20140311, end: 20140326
  2. AMANTADINE [Suspect]
     Indication: BREAST ENLARGEMENT
     Dosage: 1 PILLS  TWICE DAILY  TAKEN BY MOUTH
     Route: 048
     Dates: start: 20140311, end: 20140326
  3. AMANTADINE [Suspect]
     Indication: BREAST PAIN
     Dosage: 1 PILLS  TWICE DAILY  TAKEN BY MOUTH
     Route: 048
     Dates: start: 20140311, end: 20140326

REACTIONS (19)
  - Nausea [None]
  - Food aversion [None]
  - Hypophagia [None]
  - Weight decreased [None]
  - Vision blurred [None]
  - Vision blurred [None]
  - Tachycardia [None]
  - Blood pressure increased [None]
  - Feeling jittery [None]
  - Chest pain [None]
  - Constipation [None]
  - Drug ineffective [None]
  - Muscle spasms [None]
  - Balance disorder [None]
  - Exercise lack of [None]
  - Impaired driving ability [None]
  - Tremor [None]
  - Muscular weakness [None]
  - Insomnia [None]
